FAERS Safety Report 4329887-8 (Version None)
Quarter: 2004Q1

REPORT INFORMATION
  Report Type: 
  Country: None (occurrence: None)
  Receive Date: 20040324
  Receipt Date: 20040315
  Transmission Date: 20041129
  Serious: Yes (Death)
  Sender: FDA-Public Use
  Company Number: 2004204105FR

PATIENT
  Age: 83 Year
  Sex: Female
  Weight: 55 kg

DRUGS (1)
  1. AROMASIN [Suspect]

REACTIONS (4)
  - ACUTE RESPIRATORY FAILURE [None]
  - CONDITION AGGRAVATED [None]
  - DYSPNOEA [None]
  - PULMONARY EMBOLISM [None]
